FAERS Safety Report 8576211-0 (Version None)
Quarter: 2012Q3

REPORT INFORMATION
  Report Type: 
  Country: None (occurrence: None)
  Receive Date: 20120807
  Receipt Date: 20120730
  Transmission Date: 20120928
  Serious: Yes (Other)
  Sender: FDA-Public Use
  Company Number: GR-AMGEN-GRCSP2012020102

PATIENT
  Age: 78 Year
  Sex: Male

DRUGS (6)
  1. CORTICOSTEROIDS [Concomitant]
     Indication: IDIOPATHIC THROMBOCYTOPENIC PURPURA
  2. NPLATE [Suspect]
     Indication: IDIOPATHIC THROMBOCYTOPENIC PURPURA
     Dosage: UNK
     Dates: start: 20120305, end: 20120305
  3. POLYGAM S/D [Concomitant]
     Indication: IDIOPATHIC THROMBOCYTOPENIC PURPURA
  4. CYCLOPHOSPHAMIDE [Concomitant]
     Dosage: UNK
     Dates: start: 20120309
  5. PREDNISOLONE [Concomitant]
     Dosage: 60 MG, UNK
  6. DEXAMETHASONE [Concomitant]
     Dosage: UNK
     Route: 042
     Dates: start: 20120315

REACTIONS (4)
  - IDIOPATHIC THROMBOCYTOPENIC PURPURA [None]
  - DRUG INEFFECTIVE [None]
  - ENTEROBACTER TEST POSITIVE [None]
  - RESPIRATORY TRACT INFECTION [None]
